FAERS Safety Report 10525512 (Version 16)
Quarter: 2016Q2

REPORT INFORMATION
  Report Type: Spontaneous
  Country: HU (occurrence: HU)
  Receive Date: 20141017
  Receipt Date: 20160505
  Transmission Date: 20160815
  Serious: Yes (Hospitalization, Other)
  Sender: FDA-Public Use
  Company Number: HU-PFIZER INC-2014282599

PATIENT
  Age: 65 Year
  Sex: Male

DRUGS (6)
  1. SUTENT [Suspect]
     Active Substance: SUNITINIB MALATE
     Dosage: 50 MG, DAILY IN SCHEME 2/1 (2 DAYS TAKES, 1 DAY BREAK)
     Route: 048
     Dates: end: 20151009
  2. SUTENT [Suspect]
     Active Substance: SUNITINIB MALATE
     Indication: RENAL CANCER METASTATIC
     Dosage: 50 MG, DAILY IN SCHEME 2/1 (2 DAYS TAKES, 1 DAY BREAK)
     Route: 048
     Dates: start: 20140110, end: 20141014
  3. SUTENT [Suspect]
     Active Substance: SUNITINIB MALATE
     Dosage: UNK UNK, CYCLIC
     Route: 048
     Dates: start: 20150811, end: 20150901
  4. SUTENT [Suspect]
     Active Substance: SUNITINIB MALATE
     Dosage: 50 MG, DAILY IN SCHEME 2/1 (2 DAYS TAKES, 1 DAY BREAK)
     Route: 048
     Dates: start: 20141021
  5. SUTENT [Suspect]
     Active Substance: SUNITINIB MALATE
     Dosage: 50 MG, 1X/DAY (2 DAYS TAKING, 1 DAY BREAK)
     Route: 048
     Dates: start: 20151123
  6. COVERCARD [Suspect]
     Active Substance: AMLODIPINE BESYLATE\PERINDOPRIL ARGININE
     Indication: HYPERTENSION
     Dosage: 1 TABL, 2X/DAY
     Route: 048
     Dates: start: 20130801, end: 20141111

REACTIONS (14)
  - Systemic lupus erythematosus [Unknown]
  - Anaemia [Recovered/Resolved]
  - Diarrhoea [Recovered/Resolved]
  - Hypertension [Recovering/Resolving]
  - Hypertension [Recovered/Resolved]
  - Laryngeal oedema [Recovered/Resolved]
  - Hypersensitivity [Recovered/Resolved]
  - White blood cell count decreased [Not Recovered/Not Resolved]
  - Swelling face [Recovered/Resolved]
  - Blood count abnormal [Recovering/Resolving]
  - Pyrexia [Recovering/Resolving]
  - Toxic skin eruption [Recovering/Resolving]
  - Renal failure [Unknown]
  - Mouth swelling [Recovered/Resolved]

NARRATIVE: CASE EVENT DATE: 2014
